FAERS Safety Report 26169063 (Version 1)
Quarter: 2025Q4

REPORT INFORMATION
  Report Type: Spontaneous
  Country: US (occurrence: None)
  Receive Date: 20251216
  Receipt Date: 20251216
  Transmission Date: 20260117
  Serious: Yes (Other)
  Sender: FDA-CTU
  Company Number: None

PATIENT
  Age: 70 Year
  Sex: Male

DRUGS (1)
  1. INFLIXIMAB [Suspect]
     Active Substance: INFLIXIMAB
     Dosage: OTHER QUANTITY : 5MG/KG (400MG);?FREQUENCY : AS DIRECTED;?W?EKS D, ^2 AND 5 D1THEN1 EVERY 8 WEEKS THEREAFTER

REACTIONS (2)
  - Hypersensitivity [None]
  - Therapy cessation [None]
